FAERS Safety Report 8319942-X (Version None)
Quarter: 2012Q2

REPORT INFORMATION
  Report Type: 
  Country: None (occurrence: None)
  Receive Date: 20120427
  Receipt Date: 20120423
  Transmission Date: 20120825
  Serious: Yes (Other)
  Sender: FDA-Public Use
  Company Number: ES-ABBOTT-12P-144-0925893-00

PATIENT
  Age: 46 Year
  Sex: Female

DRUGS (5)
  1. ATORVASTATIN [Concomitant]
     Indication: PRODUCT USED FOR UNKNOWN INDICATION
  2. TAMOXIFEN CITRATE [Concomitant]
     Indication: BREAST CANCER
  3. LEVETIRACETAM [Concomitant]
     Indication: PRODUCT USED FOR UNKNOWN INDICATION
  4. ASPIRIN [Concomitant]
     Indication: PRODUCT USED FOR UNKNOWN INDICATION
  5. VALPROATE SODIUM [Suspect]
     Indication: PRODUCT USED FOR UNKNOWN INDICATION

REACTIONS (9)
  - ABDOMINAL PAIN [None]
  - AGITATION [None]
  - PORPHYRINS URINE INCREASED [None]
  - INSOMNIA [None]
  - CONSTIPATION [None]
  - PORPHYRIA ACUTE [None]
  - AFFECT LABILITY [None]
  - NERVOUSNESS [None]
  - TREMOR [None]
